FAERS Safety Report 6124436-6 (Version None)
Quarter: 2009Q1

REPORT INFORMATION
  Report Type: 
  Country: None (occurrence: None)
  Receive Date: 20090317
  Receipt Date: 20090317
  Transmission Date: 20090719
  Serious: Yes (Other)
  Sender: FDA-Public Use
  Company Number: None

PATIENT
  Age: 4 Year
  Sex: Male
  Weight: 13.1543 kg

DRUGS (1)
  1. COUGH RELIF DM [Suspect]
     Indication: COUGH
     Dosage: 1/2 TSP PO
     Route: 048
     Dates: start: 20081211, end: 20081212

REACTIONS (2)
  - LIP SWELLING [None]
  - URTICARIA [None]
